FAERS Safety Report 9065793 (Version 1)
Quarter: 2013Q1

REPORT INFORMATION
  Report Type: Report from Study
  Country: US (occurrence: US)
  Receive Date: 20130131
  Receipt Date: 20130131
  Transmission Date: 20140127
  Serious: No
  Sender: FDA-Public Use
  Company Number: US-ABBOTT-12P-163-1023103-00

PATIENT
  Age: 52 Year
  Sex: Female

DRUGS (15)
  1. HUMIRA [Suspect]
     Indication: CROHN^S DISEASE
     Dosage: INITIAL DOSE
     Route: 058
     Dates: start: 20121207
  2. CIPROFLOXACIN [Concomitant]
     Indication: RECTAL ABSCESS
     Dosage: FOR 30 DAYS
  3. CIPROFLOXACIN [Concomitant]
     Indication: ABSCESS DRAINAGE
  4. FLAGYL [Concomitant]
     Indication: RECTAL ABSCESS
     Dosage: FOR 2 MONTHS
  5. FLAGYL [Concomitant]
     Indication: ABSCESS DRAINAGE
  6. HYOSCYAMINE [Concomitant]
     Indication: MUSCLE SPASMS
  7. OMEPRAZOLE [Concomitant]
     Indication: CROHN^S DISEASE
     Dosage: DAILY
  8. GABAPENTIN [Concomitant]
     Indication: BACK PAIN
     Dosage: 2 CAPSULES, 3 TIMES DAILY
  9. VICODIN [Concomitant]
     Indication: BACK PAIN
     Dosage: 5/500MG
  10. VENTOLIN [Concomitant]
     Indication: ASTHMA
     Dosage: INHALER
  11. ADVAIR [Concomitant]
     Indication: ASTHMA
     Dosage: INHALER
  12. VITAMIN B12 [Concomitant]
     Indication: VITAMIN SUPPLEMENTATION
     Dosage: DAILY
  13. VITAMIN D3 [Concomitant]
     Indication: VITAMIN SUPPLEMENTATION
     Dosage: DAILY
  14. ZINC [Concomitant]
     Indication: VITAMIN SUPPLEMENTATION
     Dosage: DAILY
  15. PROBIOTICS [Concomitant]
     Indication: VITAMIN SUPPLEMENTATION
     Dosage: DAILY

REACTIONS (1)
  - Dyspnoea [Recovering/Resolving]
